FAERS Safety Report 8819326 (Version 1)
Quarter: 2012Q4

REPORT INFORMATION
  Report Type: Spontaneous
  Country: KR (occurrence: None)
  Receive Date: 20121003
  Receipt Date: 20121003
  Transmission Date: 20130627
  Serious: Yes (Hospitalization, Other)
  Sender: FDA-Public Use
  Company Number: FK201202745

PATIENT
  Age: 19 Year
  Sex: Female

DRUGS (3)
  1. FLUDARABINE [Suspect]
     Indication: ACUTE MYELOID LEUKAEMIA
  2. CYTARABINE (CYTARABINE) [Concomitant]
  3. IDARUBICIN (IDARUBICIN) [Concomitant]

REACTIONS (9)
  - Pulmonary cavitation [None]
  - Diarrhoea [None]
  - Abdominal pain [None]
  - Stem cell transplant [None]
  - Bronchopulmonary aspergillosis [None]
  - Pneumonia cytomegaloviral [None]
  - Graft versus host disease [None]
  - Febrile neutropenia [None]
  - Pulmonary necrosis [None]
